FAERS Safety Report 17260339 (Version 1)
Quarter: 2020Q1

REPORT INFORMATION
  Report Type: Report from Study
  Country: US (occurrence: US)
  Receive Date: 20200112
  Receipt Date: 20200112
  Transmission Date: 20200409
  Serious: Yes (Other)
  Sender: FDA-Public Use
  Company Number: US-BEH-2020111567

PATIENT
  Age: 44 Year
  Sex: Female
  Weight: 82.99 kg

DRUGS (2)
  1. HAEGARDA [Suspect]
     Active Substance: HUMAN C1-ESTERASE INHIBITOR
     Indication: HEREDITARY ANGIOEDEMA
     Dosage: 500 3000, BIW
     Route: 058
     Dates: start: 20180316
  2. HAEGARDA [Suspect]
     Active Substance: HUMAN C1-ESTERASE INHIBITOR
     Indication: PROPHYLAXIS

REACTIONS (7)
  - Hereditary angioedema [Unknown]
  - Malaise [Unknown]
  - Back disorder [Unknown]
  - Musculoskeletal disorder [Unknown]
  - Stress [Unknown]
  - Product distribution issue [Unknown]
  - Needle issue [Unknown]
